FAERS Safety Report 5470019-0 (Version None)
Quarter: 2007Q3

REPORT INFORMATION
  Report Type: 
  Country: None (occurrence: None)
  Receive Date: 20070927
  Receipt Date: 20070918
  Transmission Date: 20080115
  Serious: No
  Sender: FDA-Public Use
  Company Number: CA-BAXTER-2007BH007779

PATIENT
  Age: 20 Year
  Sex: Male
  Weight: 58 kg

DRUGS (10)
  1. IVEEGAM [Suspect]
     Indication: IMMUNODEFICIENCY COMMON VARIABLE
     Route: 042
     Dates: start: 20070907, end: 20070907
  2. IVEEGAM [Suspect]
     Indication: HYPOGAMMAGLOBULINAEMIA
     Route: 042
     Dates: start: 20070907, end: 20070907
  3. IVEEGAM [Suspect]
     Indication: SELECTIVE IGA IMMUNODEFICIENCY
     Route: 042
     Dates: start: 20070907, end: 20070907
  4. IVEEGAM [Suspect]
     Indication: BLOOD IMMUNOGLOBULIN M DECREASED
     Route: 042
     Dates: start: 20070907, end: 20070907
  5. IVEEGAM [Suspect]
     Indication: IMMUNODEFICIENCY
     Route: 042
     Dates: start: 20070907, end: 20070907
  6. SOLU-CORTEF [Concomitant]
     Indication: DRUG USE FOR UNKNOWN INDICATION
     Route: 042
     Dates: start: 20070907, end: 20070907
  7. TYLENOL (CAPLET) [Concomitant]
     Indication: DRUG USE FOR UNKNOWN INDICATION
     Route: 048
     Dates: start: 20070907
  8. BENADRYL [Concomitant]
     Indication: DRUG USE FOR UNKNOWN INDICATION
     Route: 042
     Dates: start: 20070907, end: 20070907
  9. ZANTAC [Concomitant]
     Indication: DRUG USE FOR UNKNOWN INDICATION
     Route: 048
     Dates: start: 20070907
  10. PENTASA [Concomitant]
     Indication: COLITIS ULCERATIVE
     Route: 048

REACTIONS (3)
  - CHEST DISCOMFORT [None]
  - DIZZINESS [None]
  - DYSPNOEA [None]
